FAERS Safety Report 8353754-6 (Version None)
Quarter: 2012Q2

REPORT INFORMATION
  Report Type: 
  Country: None (occurrence: None)
  Receive Date: 20120511
  Receipt Date: 20111021
  Transmission Date: 20120825
  Serious: No
  Sender: FDA-Public Use
  Company Number: US-GLAXOSMITHKLINE-A0950325A

PATIENT
  Sex: Female

DRUGS (2)
  1. XELODA [Concomitant]
     Route: 065
     Dates: end: 20120223
  2. TYKERB [Suspect]
     Indication: BREAST CANCER
     Dosage: 1250MG PER DAY
     Route: 065

REACTIONS (2)
  - DYSPEPSIA [None]
  - PAIN IN EXTREMITY [None]
